FAERS Safety Report 5608472-1 (Version None)
Quarter: 2008Q1

REPORT INFORMATION
  Report Type: 
  Country: None (occurrence: None)
  Receive Date: 20080125
  Receipt Date: 20080114
  Transmission Date: 20080703
  Serious: Yes (Hospitalization)
  Sender: FDA-Public Use
  Company Number: 2007331816

PATIENT
  Age: 56 Year
  Sex: Female

DRUGS (20)
  1. BENADRYL [Suspect]
  2. CHANTIX [Suspect]
     Indication: SMOKING CESSATION THERAPY
     Dosage: 2MG, ORAL
     Route: 048
     Dates: start: 20070721, end: 20070801
  3. LORTAB [Suspect]
  4. DARVOCET [Concomitant]
  5. PLAVIX [Concomitant]
  6. ASPIRIN [Concomitant]
  7. DRUG, UNSPECIFIED (DRUG, UNSPECIFIED) [Concomitant]
  8. TOPROL-XL [Concomitant]
  9. PRAVASTATIN [Concomitant]
  10. ASPIRIN [Concomitant]
  11. FOLTX (CYANOCOBALAMIN, FOLIC ACID, PYRIDOXINE) [Concomitant]
  12. POTASSIUM CHLORIDE [Concomitant]
  13. CALCIUM WITH VITAMIN D (CALCIUM PHOSPHATE, CALCIUM SODIUM LACTATE, ERG [Concomitant]
  14. NITROGLYCERIN [Concomitant]
  15. ISOSORBIDE MONONITRATE [Concomitant]
  16. PAROXETINE HCL [Concomitant]
  17. PLAVIX [Concomitant]
  18. NEXIUM [Concomitant]
  19. FLEXERIL [Concomitant]
  20. LISINOPRIL [Concomitant]

REACTIONS (2)
  - DRUG INTERACTION [None]
  - MENTAL STATUS CHANGES [None]
